FAERS Safety Report 9270160 (Version 2)
Quarter: 2013Q2

REPORT INFORMATION
  Report Type: Spontaneous
  Country: US (occurrence: US)
  Receive Date: 20130503
  Receipt Date: 20130606
  Transmission Date: 20140414
  Serious: Yes (Death, Hospitalization)
  Sender: FDA-Public Use
  Company Number: US-GLAXOSMITHKLINE-A1021450A

PATIENT
  Age: 77 Year
  Sex: Male

DRUGS (6)
  1. ADVAIR [Suspect]
     Indication: CHRONIC OBSTRUCTIVE PULMONARY DISEASE
     Dosage: 1PUFF TWICE PER DAY
     Route: 055
  2. DIGOXIN [Concomitant]
  3. COMBIVENT [Concomitant]
  4. TIKOSYN [Concomitant]
  5. PREDNISONE [Concomitant]
  6. THYROID MEDICATION [Concomitant]

REACTIONS (4)
  - Pneumonia [Fatal]
  - Emphysema [Fatal]
  - Cardiac arrest [Unknown]
  - Mechanical ventilation [Unknown]
